FAERS Safety Report 4356831-X (Version None)
Quarter: 2004Q2

REPORT INFORMATION
  Report Type: 
  Country: None (occurrence: None)
  Receive Date: 20040507
  Receipt Date: 20040429
  Transmission Date: 20050107
  Serious: Yes (Disabling)
  Sender: FDA-Public Use
  Company Number: 2003012764

PATIENT
  Age: 58 Year
  Sex: Male
  Weight: 71 kg

DRUGS (4)
  1. ATORVASTATIN (ATORVASTATIN) [Suspect]
     Indication: HYPERCHOLESTEROLAEMIA
     Dosage: 10 MG (1 IN 1 D), ORAL
     Route: 048
     Dates: start: 20020614, end: 20030303
  2. NAPROXEN [Concomitant]
  3. RAMIPRIL [Concomitant]
  4. ISOSORBIDE MONONITRATE [Concomitant]

REACTIONS (2)
  - MYELOPATHY [None]
  - RADICULOPATHY [None]
